FAERS Safety Report 6173831-8 (Version None)
Quarter: 2009Q2

REPORT INFORMATION
  Report Type: 
  Country: None (occurrence: None)
  Receive Date: 20090429
  Receipt Date: 20090429
  Transmission Date: 20091009
  Serious: Yes (Other)
  Sender: FDA-Public Use
  Company Number: None

PATIENT
  Age: 57 Year
  Sex: Female
  Weight: 61.2356 kg

DRUGS (1)
  1. DIPHENHYDRAMINE HCL [Suspect]
     Indication: RASH
     Dosage: 25 MG PO
     Route: 048
     Dates: start: 20090117, end: 20090117

REACTIONS (5)
  - BLOOD PRESSURE SYSTOLIC INCREASED [None]
  - NO REACTION ON PREVIOUS EXPOSURE TO DRUG [None]
  - PALPITATIONS [None]
  - RASH PRURITIC [None]
  - TINNITUS [None]
